FAERS Safety Report 4442785-4 (Version None)
Quarter: 2004Q3

REPORT INFORMATION
  Report Type: 
  Country: None (occurrence: None)
  Receive Date: 20040903
  Receipt Date: 20040610
  Transmission Date: 20050211
  Serious: Yes (Other)
  Sender: FDA-Public Use
  Company Number: 2004UW12074

PATIENT
  Age: 62 Year
  Sex: Female
  Weight: 106.5953 kg

DRUGS (8)
  1. CRESTOR [Suspect]
     Indication: HYPERCHOLESTEROLAEMIA
     Dosage: 10 MG QD PO
     Route: 048
     Dates: start: 20040401
  2. PENTASA [Concomitant]
  3. VERAPAMIL [Concomitant]
  4. PRINIVIL [Concomitant]
  5. SYNTHROID [Concomitant]
  6. GLUCOSAMINE [Concomitant]
  7. AXID [Concomitant]
  8. DARVOCET-N 100 [Concomitant]

REACTIONS (3)
  - ABDOMINAL DISTENSION [None]
  - FLATULENCE [None]
  - NAUSEA [None]
